FAERS Safety Report 5472601-3 (Version None)
Quarter: 2007Q4

REPORT INFORMATION
  Report Type: 
  Country: None (occurrence: None)
  Receive Date: 20071001
  Receipt Date: 20061012
  Transmission Date: 20080405
  Serious: No
  Sender: FDA-Public Use
  Company Number: US-ASTRAZENECA-2006UW01018

PATIENT
  Age: 67 Year
  Sex: Female
  Weight: 52.2 kg

DRUGS (1)
  1. ARIMIDEX [Suspect]
     Route: 048
     Dates: start: 20051001

REACTIONS (3)
  - ALOPECIA [None]
  - ANAEMIA [None]
  - BLOOD GLUCOSE INCREASED [None]
